FAERS Safety Report 11070034 (Version 1)
Quarter: 2015Q2

REPORT INFORMATION
  Report Type: Spontaneous
  Country: IR (occurrence: IR)
  Receive Date: 20150427
  Receipt Date: 20150427
  Transmission Date: 20150821
  Serious: Yes (Other)
  Sender: FDA-Public Use
  Company Number: IR-MYLANLABS-2015M1013879

PATIENT

DRUGS (1)
  1. MITOXANTRONE [Suspect]
     Active Substance: MITOXANTRONE HYDROCHLORIDE
     Indication: RELAPSING-REMITTING MULTIPLE SCLEROSIS
     Dosage: RECEIVED TOTAL CUMULATIVE DOSAGE 40MG
     Route: 041

REACTIONS (8)
  - Fatigue [Recovered/Resolved]
  - Cardiomyopathy [Recovered/Resolved]
  - Chromaturia [Recovered/Resolved]
  - Alopecia [Recovered/Resolved]
  - Vertigo [Recovered/Resolved]
  - Nail discolouration [Recovered/Resolved]
  - Scleral discolouration [Recovered/Resolved]
  - Decreased appetite [Recovered/Resolved]
